FAERS Safety Report 12846249 (Version 2)
Quarter: 2017Q3

REPORT INFORMATION
  Report Type: Report from Study
  Country: US (occurrence: US)
  Receive Date: 20161014
  Receipt Date: 20170914
  Transmission Date: 20171127
  Serious: Yes (Other)
  Sender: FDA-Public Use
  Company Number: PHEH2016US026144

PATIENT
  Sex: Male

DRUGS (1)
  1. COSENTYX [Suspect]
     Active Substance: SECUKINUMAB
     Indication: PSORIASIS
     Dosage: 300 MG, QMO
     Route: 065
     Dates: start: 20150519

REACTIONS (4)
  - Pneumoconiosis [Unknown]
  - Lung disorder [Unknown]
  - Interstitial lung disease [Unknown]
  - Emphysema [Unknown]

NARRATIVE: CASE EVENT DATE: 201603
